FAERS Safety Report 21244842 (Version 1)
Quarter: 2022Q3

REPORT INFORMATION
  Report Type: Report from Study
  Country: US (occurrence: US)
  Receive Date: 20220823
  Receipt Date: 20220823
  Transmission Date: 20221027
  Serious: Yes (Hospitalization, Other)
  Sender: FDA-Public Use
  Company Number: US-009507513-2207USA009314

PATIENT
  Sex: Female
  Weight: 66.7 kg

DRUGS (22)
  1. KEYTRUDA [Suspect]
     Active Substance: PEMBROLIZUMAB
     Indication: Brain neoplasm malignant
     Dosage: 160MG IV, Q3W
     Route: 042
     Dates: start: 20210802, end: 20210802
  2. KEYTRUDA [Suspect]
     Active Substance: PEMBROLIZUMAB
     Dosage: 160 MILLIGRAM IV, Q3W
     Route: 042
     Dates: start: 20210823, end: 20210823
  3. KEYTRUDA [Suspect]
     Active Substance: PEMBROLIZUMAB
     Dosage: 160 MILLIGRAM IV, Q3W
     Route: 042
     Dates: start: 20210920, end: 20210920
  4. KEYTRUDA [Suspect]
     Active Substance: PEMBROLIZUMAB
     Dosage: 160 MILLIGRAM IV, Q3W
     Route: 042
     Dates: start: 20211011, end: 20211011
  5. KEYTRUDA [Suspect]
     Active Substance: PEMBROLIZUMAB
     Dosage: 160 MILLIGRAM IV, Q3W
     Route: 042
     Dates: start: 20211101, end: 20211101
  6. KEYTRUDA [Suspect]
     Active Substance: PEMBROLIZUMAB
     Dosage: 160 MILLIGRAM IV, Q3W
     Route: 042
     Dates: start: 20211129, end: 20211129
  7. KEYTRUDA [Suspect]
     Active Substance: PEMBROLIZUMAB
     Dosage: 120 UNK
     Dates: start: 20220103, end: 20220103
  8. KEYTRUDA [Suspect]
     Active Substance: PEMBROLIZUMAB
     Dosage: 100 UNK
     Dates: start: 20220202, end: 20220202
  9. KISQALI [Suspect]
     Active Substance: RIBOCICLIB
     Dosage: 600 MILLIGRAM, QD, EVERY 28 DAYS
     Route: 048
     Dates: start: 20210815
  10. KISQALI [Suspect]
     Active Substance: RIBOCICLIB
     Dosage: 600 MILLIGRAM, QD, EVERY 28 DAYS
     Route: 048
     Dates: start: 20211025, end: 20211025
  11. DEXILANT [Suspect]
     Active Substance: DEXLANSOPRAZOLE
  12. BRIVIACT [Suspect]
     Active Substance: BRIVARACETAM
     Indication: Seizure
     Dosage: 100 MILLIGRAM, BID
  13. BRIVIACT [Suspect]
     Active Substance: BRIVARACETAM
     Dosage: 150 MILLIGRAM, BID
     Dates: start: 20220318
  14. BRIVIACT [Suspect]
     Active Substance: BRIVARACETAM
     Dosage: 200 MILLIGRAM
  15. BRIVIACT [Suspect]
     Active Substance: BRIVARACETAM
     Dosage: 150 MILLIGRAM IN THE MORNING AND 100 MILLIGRAMS AT NIGHT
  16. INFLECTRA [Concomitant]
     Active Substance: INFLIXIMAB-DYYB
     Dosage: 360 MILLIGRAM
     Route: 042
     Dates: start: 20211011, end: 20211011
  17. INFLECTRA [Concomitant]
     Active Substance: INFLIXIMAB-DYYB
     Dosage: UNK
     Dates: start: 20211101, end: 20211101
  18. INFLECTRA [Concomitant]
     Active Substance: INFLIXIMAB-DYYB
     Dosage: UNK
     Dates: start: 20211129, end: 20211129
  19. ENTYVIO [Concomitant]
     Active Substance: VEDOLIZUMAB
     Dosage: 300 MILLIGRAM
     Dates: start: 20211217, end: 20211217
  20. ENTYVIO [Concomitant]
     Active Substance: VEDOLIZUMAB
     Dosage: 300 MILLIGRAM
     Dates: start: 20211227, end: 20211227
  21. ENTYVIO [Concomitant]
     Active Substance: VEDOLIZUMAB
     Dosage: 300 UNK
     Dates: start: 20220202, end: 20220202
  22. ENTYVIO [Concomitant]
     Active Substance: VEDOLIZUMAB
     Dosage: 300 UNK
     Dates: start: 20220223, end: 20220223

REACTIONS (62)
  - Malignant neoplasm progression [Unknown]
  - Immune-mediated enterocolitis [Unknown]
  - Dyspnoea [Unknown]
  - Diarrhoea [Recovered/Resolved]
  - Postictal paralysis [Unknown]
  - Hypokalaemia [Recovered/Resolved]
  - Hypokalaemia [Recovered/Resolved]
  - Adverse event [Unknown]
  - Syncope [Unknown]
  - Unresponsive to stimuli [Unknown]
  - Craniotomy [Unknown]
  - Radiotherapy to brain [Unknown]
  - Drug intolerance [Unknown]
  - Neutropenia [Unknown]
  - Dysphonia [Unknown]
  - Pulse abnormal [Unknown]
  - Hypersomnia [Unknown]
  - Eyelid ptosis [Unknown]
  - Gait disturbance [Unknown]
  - Tongue biting [Unknown]
  - Antinuclear antibody increased [Unknown]
  - Mouth ulceration [Unknown]
  - Homans^ sign [Unknown]
  - Urinary tract infection [Unknown]
  - Hypoaesthesia oral [Unknown]
  - Eyelid margin crusting [Unknown]
  - Haematocrit decreased [Unknown]
  - Grief reaction [Unknown]
  - Colonoscopy [Unknown]
  - Endoscopy upper gastrointestinal tract [Unknown]
  - Photosensitivity reaction [Unknown]
  - Dyspepsia [Unknown]
  - Hyperhidrosis [Unknown]
  - Mean cell volume decreased [Unknown]
  - Red blood cell count decreased [Unknown]
  - Dry mouth [Unknown]
  - Head discomfort [Recovered/Resolved]
  - Malaise [Unknown]
  - Dry eye [Unknown]
  - Pain [Unknown]
  - Oedema peripheral [Unknown]
  - Abdominal pain upper [Unknown]
  - Dizziness [Unknown]
  - Diarrhoea [Unknown]
  - Decreased appetite [Unknown]
  - Fatigue [Unknown]
  - Hyponatraemia [Recovered/Resolved]
  - Rash pruritic [Unknown]
  - Chills [Unknown]
  - Colitis [Unknown]
  - Pruritus [Unknown]
  - Product dose omission issue [Unknown]
  - Product use in unapproved indication [Unknown]
  - Product use issue [Unknown]
  - Product use issue [Unknown]
  - Product use issue [Unknown]
  - Incorrect dose administered [Unknown]
  - Incorrect dose administered [Unknown]
  - Incorrect dose administered [Unknown]
  - Incorrect dose administered [Unknown]
  - Incorrect dose administered [Unknown]
  - Incorrect dose administered [Unknown]

NARRATIVE: CASE EVENT DATE: 20210101
